FAERS Safety Report 21414874 (Version 1)
Quarter: 2022Q4

REPORT INFORMATION
  Report Type: Spontaneous
  Country: US (occurrence: US)
  Receive Date: 20221006
  Receipt Date: 20221006
  Transmission Date: 20230112
  Serious: No
  Sender: FDA-Public Use
  Company Number: US-ALLERGAN-2231148US

PATIENT
  Sex: Female

DRUGS (1)
  1. QULIPTA [Suspect]
     Active Substance: ATOGEPANT
     Indication: Product used for unknown indication
     Dosage: UNK
     Dates: start: 2022, end: 2022

REACTIONS (4)
  - Therapy interrupted [Unknown]
  - Somnolence [Unknown]
  - Headache [Not Recovered/Not Resolved]
  - Migraine [Unknown]

NARRATIVE: CASE EVENT DATE: 20220101
